FAERS Safety Report 13961273 (Version 1)
Quarter: 2017Q3

REPORT INFORMATION
  Report Type: Spontaneous
  Country: US (occurrence: US)
  Receive Date: 20170912
  Receipt Date: 20170912
  Transmission Date: 20171128
  Serious: Yes (Other)
  Sender: FDA-Public Use
  Company Number: US-BRACCO-2017US04121

PATIENT
  Age: 61 Year
  Sex: Female

DRUGS (4)
  1. OPTIMARK [Suspect]
     Active Substance: GADOVERSETAMIDE
     Indication: NUCLEAR MAGNETIC RESONANCE IMAGING
  2. DOTAREM [Suspect]
     Active Substance: GADOTERATE MEGLUMINE
     Indication: NUCLEAR MAGNETIC RESONANCE IMAGING
  3. MULTIHANCE [Suspect]
     Active Substance: GADOBENATE DIMEGLUMINE
     Indication: NUCLEAR MAGNETIC RESONANCE IMAGING
  4. GADOVIST [Suspect]
     Active Substance: GADOBUTROL
     Indication: NUCLEAR MAGNETIC RESONANCE IMAGING

REACTIONS (33)
  - Pelvic pain [Unknown]
  - Musculoskeletal chest pain [Unknown]
  - Alopecia [Unknown]
  - Muscle atrophy [Unknown]
  - Bone pain [Unknown]
  - Formication [Unknown]
  - Granuloma [Unknown]
  - Back pain [Unknown]
  - Muscle spasms [Unknown]
  - Pruritus [Unknown]
  - Lacrimation increased [Unknown]
  - Solar lentigo [Unknown]
  - Pulmonary mass [Unknown]
  - Arthralgia [Unknown]
  - Cognitive disorder [Unknown]
  - Gadolinium deposition disease [Unknown]
  - Balance disorder [Unknown]
  - Dysphagia [Unknown]
  - Peau d^orange [Unknown]
  - Thyroid mass [Unknown]
  - Spinal pain [Unknown]
  - Toothache [Unknown]
  - Joint contracture [Unknown]
  - Skin tightness [Unknown]
  - Pain [Unknown]
  - Gingival bleeding [Unknown]
  - Skin lesion [Unknown]
  - Urine analysis abnormal [Unknown]
  - Weight decreased [Unknown]
  - Myalgia [Unknown]
  - Hypoaesthesia [Unknown]
  - Dyspnoea [Unknown]
  - Skin hypertrophy [Unknown]
